FAERS Safety Report 8666936 (Version 2)
Quarter: 2015Q2

REPORT INFORMATION
  Report Type: Report from Study
  Country: US (occurrence: US)
  Receive Date: 20120716
  Receipt Date: 20150625
  Transmission Date: 20150821
  Serious: Yes (Death)
  Sender: FDA-Public Use
  Company Number: US-ROCHE-1087000

PATIENT
  Sex: Male

DRUGS (2)
  1. ZYMAR [Concomitant]
     Active Substance: GATIFLOXACIN
  2. LUCENTIS [Suspect]
     Active Substance: RANIBIZUMAB
     Indication: RETINAL VEIN OCCLUSION
     Route: 050
     Dates: start: 20090112, end: 20090205

REACTIONS (1)
  - Death [Fatal]
